FAERS Safety Report 12014976 (Version 1)
Quarter: 2016Q1

REPORT INFORMATION
  Report Type: Spontaneous
  Country: US (occurrence: US)
  Receive Date: 20160205
  Receipt Date: 20160205
  Transmission Date: 20160526
  Serious: No
  Sender: FDA-Public Use
  Company Number: US-AMGEN-USASP2015015986

PATIENT

DRUGS (3)
  1. ADRIAMYCIN [Concomitant]
     Active Substance: DOXORUBICIN HYDROCHLORIDE
     Dosage: EVERY OTHER WEEK
  2. NEULASTA [Suspect]
     Active Substance: PEGFILGRASTIM
     Indication: PRODUCT USED FOR UNKNOWN INDICATION
     Dosage: UNK
     Route: 065
  3. CYTOXAN [Concomitant]
     Active Substance: CYCLOPHOSPHAMIDE
     Dosage: EVERY OTHER WEEK

REACTIONS (7)
  - Depressed mood [Unknown]
  - Arthralgia [Unknown]
  - Influenza like illness [Unknown]
  - Fatigue [Unknown]
  - Nasal discomfort [Unknown]
  - Nausea [Unknown]
  - Infusion site pain [Unknown]
